FAERS Safety Report 8374398-6 (Version None)
Quarter: 2012Q2

REPORT INFORMATION
  Report Type: 
  Country: None (occurrence: None)
  Receive Date: 20120521
  Receipt Date: 20120516
  Transmission Date: 20120825
  Serious: Yes (Other)
  Sender: FDA-Public Use
  Company Number: US-PFIZER INC-2011270495

PATIENT
  Sex: Male
  Weight: 107 kg

DRUGS (4)
  1. LIPITOR [Suspect]
     Indication: BLOOD CHOLESTEROL INCREASED
     Dosage: UNK
     Dates: start: 19930101, end: 20120101
  2. VIAGRA [Suspect]
     Dosage: UNK
  3. SUTENT [Suspect]
     Indication: PROSTATE CANCER
     Dosage: 25 MG, DAILY
  4. BICALUTAMIDE [Suspect]
     Indication: PROSTATE CANCER
     Dosage: 50 MG, DAILY
     Dates: start: 20110401, end: 20120101

REACTIONS (4)
  - HYPERTENSION [None]
  - BLOOD TRIGLYCERIDES INCREASED [None]
  - PROSTATE CANCER [None]
  - BLOOD GLUCOSE INCREASED [None]
